FAERS Safety Report 25959124 (Version 2)
Quarter: 2025Q4

REPORT INFORMATION
  Report Type: Spontaneous
  Country: JP (occurrence: JP)
  Receive Date: 20251025
  Receipt Date: 20251104
  Transmission Date: 20260117
  Serious: Yes (Death)
  Sender: AMGEN
  Company Number: JP-AMGEN-JPNSP2025208269

PATIENT
  Age: 17 Year
  Sex: Male

DRUGS (2)
  1. BLINCYTO [Suspect]
     Active Substance: BLINATUMOMAB
     Indication: Acute leukaemia
     Dosage: UNK, DRIP INFUSION
     Route: 040
     Dates: start: 20251017
  2. BLINCYTO [Suspect]
     Active Substance: BLINATUMOMAB
     Indication: Off label use

REACTIONS (2)
  - Acute biphenotypic leukaemia [Fatal]
  - Off label use [Unknown]
